FAERS Safety Report 10588025 (Version 1)
Quarter: 2014Q4

REPORT INFORMATION
  Report Type: Spontaneous
  Country: US (occurrence: US)
  Receive Date: 20141117
  Receipt Date: 20141117
  Transmission Date: 20150529
  Serious: Yes (Life-Threatening, Hospitalization, Disabling)
  Sender: FDA-Public Use
  Company Number: US-BRISTOL-MYERS SQUIBB COMPANY-21574660

PATIENT
  Age: 57 Year
  Sex: Female

DRUGS (12)
  1. METFORMIN HCL [Suspect]
     Active Substance: METFORMIN HYDROCHLORIDE
  2. ALDACTONE [Concomitant]
     Active Substance: SPIRONOLACTONE
  3. LASIX [Concomitant]
     Active Substance: FUROSEMIDE
  4. DIOVAN [Concomitant]
     Active Substance: VALSARTAN
  5. RISPERIDAL [Suspect]
     Active Substance: RISPERIDONE
     Indication: SCHIZOPHRENIA
     Route: 048
  6. COREG [Concomitant]
     Active Substance: CARVEDILOL
  7. LEVOTHYROXINE [Concomitant]
     Active Substance: LEVOTHYROXINE
  8. ACETYLSALICYLIC ACID [Concomitant]
     Active Substance: ASPIRIN
  9. DACORTIN [Concomitant]
     Active Substance: PREDNISONE
  10. RISPERIDAL [Suspect]
     Active Substance: RISPERIDONE
     Indication: SCHIZOPHRENIA
     Dosage: INITIATED 8 TO 10 YEARS BACK
     Route: 030
  11. SIMVASTATIN. [Concomitant]
     Active Substance: SIMVASTATIN
  12. ALLOPURINOL. [Concomitant]
     Active Substance: ALLOPURINOL

REACTIONS (2)
  - General physical health deterioration [Unknown]
  - Cardiac failure congestive [Recovered/Resolved with Sequelae]

NARRATIVE: CASE EVENT DATE: 2014
